FAERS Safety Report 23154551 (Version 1)
Quarter: 2023Q4

REPORT INFORMATION
  Report Type: Spontaneous
  Country: US (occurrence: None)
  Receive Date: 20231107
  Receipt Date: 20231107
  Transmission Date: 20240109
  Serious: Yes (Hospitalization, Other)
  Sender: FDA-Public Use
  Company Number: None

PATIENT
  Age: 58 Year
  Sex: Female
  Weight: 90.72 kg

DRUGS (1)
  1. LOSARTAN [Suspect]
     Active Substance: LOSARTAN
     Indication: Hypertension
     Dosage: 25MG 1 X A DAY
     Dates: start: 20230905, end: 20231101

REACTIONS (8)
  - Pruritus [None]
  - Generalised oedema [None]
  - Tongue discomfort [None]
  - Dysphagia [None]
  - Oral mucosal blistering [None]
  - Ocular hyperaemia [None]
  - Nasal mucosal blistering [None]
  - Swollen tongue [None]

NARRATIVE: CASE EVENT DATE: 20231022
